FAERS Safety Report 9110874 (Version 1)
Quarter: 2013Q1

REPORT INFORMATION
  Report Type: Spontaneous
  Country: US (occurrence: US)
  Receive Date: 20130219
  Receipt Date: 20130219
  Transmission Date: 20140127
  Serious: Yes (Hospitalization)
  Sender: FDA-Public Use
  Company Number: US-BRISTOL-MYERS SQUIBB COMPANY-16599342

PATIENT
  Age: 12 Year
  Sex: Female
  Weight: 29.93 kg

DRUGS (1)
  1. ORENCIA [Suspect]
     Indication: JUVENILE IDIOPATHIC ARTHRITIS
     Route: 042
     Dates: start: 20110526

REACTIONS (1)
  - Varicella [Recovered/Resolved]
